FAERS Safety Report 13227986 (Version 1)
Quarter: 2017Q1

REPORT INFORMATION
  Report Type: Spontaneous
  Country: GB (occurrence: GB)
  Receive Date: 20170213
  Receipt Date: 20170213
  Transmission Date: 20170428
  Serious: Yes (Hospitalization, Other)
  Sender: FDA-Public Use
  Company Number: GB-ACTELION-A-US2017-149832

PATIENT
  Age: 42 Year
  Sex: Female

DRUGS (3)
  1. SILDENAFIL. [Concomitant]
     Active Substance: SILDENAFIL
  2. VENTAVIS [Suspect]
     Active Substance: ILOPROST
     Indication: PULMONARY HYPERTENSION
     Dosage: 5 MCG, 5ID
     Route: 055
     Dates: start: 201401
  3. VOLIBRIS [Concomitant]
     Active Substance: AMBRISENTAN

REACTIONS (5)
  - Malaise [Unknown]
  - Asthenia [Unknown]
  - Device malfunction [Unknown]
  - Drug dose omission [Unknown]
  - Abasia [Unknown]

NARRATIVE: CASE EVENT DATE: 2017
